FAERS Safety Report 25340728 (Version 1)
Quarter: 2025Q2

REPORT INFORMATION
  Report Type: Spontaneous
  Country: US (occurrence: US)
  Receive Date: 20250521
  Receipt Date: 20250521
  Transmission Date: 20250717
  Serious: No
  Sender: UNITED THERAPEUTICS
  Company Number: US-UNITED THERAPEUTICS-UNT-2025-014459

PATIENT
  Age: 65 Year
  Sex: Female

DRUGS (10)
  1. TYVASO [Suspect]
     Active Substance: TREPROSTINIL
     Indication: Pulmonary arterial hypertension
     Dosage: 6 ?G, QID
     Dates: start: 202504, end: 202504
  2. TYVASO [Suspect]
     Active Substance: TREPROSTINIL
     Dosage: 12 ?G, QID
     Dates: start: 202504
  3. OFEV [Concomitant]
     Active Substance: NINTEDANIB
     Indication: Idiopathic pulmonary fibrosis
     Dosage: 100 MG, BID
     Dates: start: 202404
  4. ALBUTEROL [Concomitant]
     Active Substance: ALBUTEROL
     Indication: Dyspnoea
  5. ALBUTEROL [Concomitant]
     Active Substance: ALBUTEROL
     Indication: Pulmonary fibrosis
  6. B12 [Concomitant]
     Indication: Fatigue
  7. VITAMINS [Concomitant]
     Active Substance: VITAMINS
     Indication: Pulmonary fibrosis
  8. BUDESONIDE [Concomitant]
     Active Substance: BUDESONIDE
     Indication: Pulmonary fibrosis
  9. TYMLOS [Concomitant]
     Active Substance: ABALOPARATIDE
     Indication: Product used for unknown indication
  10. PREDNISONE [Concomitant]
     Active Substance: PREDNISONE
     Indication: Product used for unknown indication

REACTIONS (6)
  - Nausea [Recovering/Resolving]
  - Fatigue [Recovering/Resolving]
  - Dyspnoea [Recovering/Resolving]
  - Cough [Unknown]
  - Throat irritation [Unknown]
  - Chest discomfort [Recovering/Resolving]

NARRATIVE: CASE EVENT DATE: 20250401
